FAERS Safety Report 7607507-4 (Version None)
Quarter: 2011Q3

REPORT INFORMATION
  Report Type: 
  Country: None (occurrence: None)
  Receive Date: 20110713
  Receipt Date: 20110701
  Transmission Date: 20111222
  Serious: Yes (Hospitalization, Other)
  Sender: FDA-Public Use
  Company Number: JP-GENENTECH-316363

PATIENT
  Age: 70 Year
  Sex: Male

DRUGS (2)
  1. XOLAIR [Suspect]
     Indication: ASTHMA
     Dosage: 300 MG, Q2W
     Route: 058
     Dates: start: 20090410, end: 20110315
  2. XOLAIR [Suspect]
     Dosage: 300 MG, BID
     Route: 058

REACTIONS (4)
  - STERNAL FRACTURE [None]
  - ROAD TRAFFIC ACCIDENT [None]
  - RENAL FAILURE ACUTE [None]
  - VASCULITIS NECROTISING [None]
